FAERS Safety Report 4625651-0 (Version None)
Quarter: 2005Q1

REPORT INFORMATION
  Report Type: 
  Country: None (occurrence: None)
  Receive Date: 20050330
  Receipt Date: 20050315
  Transmission Date: 20050727
  Serious: Yes (Hospitalization, Disabling)
  Sender: FDA-Public Use
  Company Number: GBS050316930

PATIENT
  Age: 69 Year
  Sex: Female

DRUGS (2)
  1. GEMCITABINE HYDROCHLORIDE-IV (GEMCITABINE) [Suspect]
     Indication: PANCREATIC CARCINOMA
     Dates: start: 20050118, end: 20050222
  2. MAXOLON [Concomitant]

REACTIONS (1)
  - URTICARIA [None]
